FAERS Safety Report 18944835 (Version 2)
Quarter: 2021Q1

REPORT INFORMATION
  Report Type: Spontaneous
  Country: US (occurrence: US)
  Receive Date: 20210226
  Receipt Date: 20210303
  Transmission Date: 20210420
  Serious: Yes (Other)
  Sender: FDA-Public Use
  Company Number: US-PFIZER INC-2021169553

PATIENT
  Age: 67 Year
  Sex: Female

DRUGS (2)
  1. SOMAVERT [Suspect]
     Active Substance: PEGVISOMANT
     Dosage: 20 MG 9 TIMES PER WEEK
  2. SOMAVERT [Suspect]
     Active Substance: PEGVISOMANT
     Dosage: 20 MG, DAILY (A WEEK)
     Route: 058

REACTIONS (3)
  - Brain neoplasm [Unknown]
  - Off label use [Unknown]
  - Pituitary tumour [Unknown]
